FAERS Safety Report 4609591-9 (Version None)
Quarter: 2005Q1

REPORT INFORMATION
  Report Type: 
  Country: None (occurrence: None)
  Receive Date: 20050314
  Receipt Date: 20050314
  Transmission Date: 20050727
  Serious: Yes (Life-Threatening)
  Sender: FDA-Public Use
  Company Number: None

PATIENT
  Age: 50 Year
  Sex: Female
  Weight: 98.4306 kg

DRUGS (1)
  1. AVELOX [Suspect]
     Indication: BRONCHITIS
     Dosage: 1 DAILY
     Dates: start: 20050309

REACTIONS (4)
  - ANAPHYLACTIC REACTION [None]
  - HYPERTENSION [None]
  - RASH [None]
  - SWELLING [None]
